FAERS Safety Report 20924231 (Version 1)
Quarter: 2022Q2

REPORT INFORMATION
  Report Type: Spontaneous
  Country: US (occurrence: None)
  Receive Date: 20220606
  Receipt Date: 20220606
  Transmission Date: 20220721
  Serious: No
  Sender: FDA-Public Use
  Company Number: None

PATIENT
  Age: 65 Year
  Sex: Female
  Weight: 65.25 kg

DRUGS (5)
  1. IBANDRONATE SODIUM [Suspect]
     Active Substance: IBANDRONATE SODIUM
     Indication: Osteoporosis
     Route: 048
  2. Mult Vit [Concomitant]
  3. VITAMIN D NOS [Concomitant]
     Active Substance: VITAMIN D NOS
  4. CALCIUM [Concomitant]
     Active Substance: CALCIUM
  5. MAGNESIUM [Concomitant]
     Active Substance: MAGNESIUM

REACTIONS (7)
  - Arthralgia [None]
  - Pain in extremity [None]
  - Myalgia [None]
  - Fatigue [None]
  - Headache [None]
  - Pain in jaw [None]
  - Dyspepsia [None]

NARRATIVE: CASE EVENT DATE: 20220522
